FAERS Safety Report 4543388-3 (Version None)
Quarter: 2004Q4

REPORT INFORMATION
  Report Type: 
  Country: None (occurrence: None)
  Receive Date: 20041230
  Receipt Date: 20041230
  Transmission Date: 20050328
  Serious: Yes (Life-Threatening, Hospitalization)
  Sender: FDA-Public Use
  Company Number: None

PATIENT
  Age: 38 Year
  Sex: Female
  Weight: 62.5964 kg

DRUGS (1)
  1. WELLBUTRIN [Suspect]
     Dates: start: 20040808, end: 20040904

REACTIONS (1)
  - STEVENS-JOHNSON SYNDROME [None]
